FAERS Safety Report 6315978-9 (Version None)
Quarter: 2009Q3

REPORT INFORMATION
  Report Type: 
  Country: None (occurrence: None)
  Receive Date: 20090819
  Receipt Date: 20090819
  Transmission Date: 20100115
  Serious: Yes (Other)
  Sender: FDA-Public Use
  Company Number: None

PATIENT
  Age: 29 Year
  Sex: Female
  Weight: 65.7716 kg

DRUGS (1)
  1. TOPIRAMATE [Suspect]
     Indication: MIGRAINE
     Dosage: 50MG QD-A.M. PO; 100 MG QD-H.S. PO
     Route: 048
     Dates: start: 20090808, end: 20090816

REACTIONS (7)
  - AGITATION [None]
  - ANXIETY [None]
  - AURA [None]
  - FATIGUE [None]
  - INSOMNIA [None]
  - PRODUCT SUBSTITUTION ISSUE [None]
  - SENSORY DISTURBANCE [None]
